FAERS Safety Report 7286670-1 (Version None)
Quarter: 2011Q1

REPORT INFORMATION
  Report Type: 
  Country: None (occurrence: None)
  Receive Date: 20110210
  Receipt Date: 20101229
  Transmission Date: 20110831
  Serious: Yes (Hospitalization, Other)
  Sender: FDA-Public Use
  Company Number: US-BAXTER-2010BH003732

PATIENT
  Age: 37 Year
  Sex: Male
  Weight: 79 kg

DRUGS (55)
  1. HEPARIN SODIUM INJECTION [Suspect]
     Indication: HAEMODIALYSIS
     Route: 042
     Dates: start: 20071001, end: 20080201
  2. HEPARIN SODIUM INJECTION [Suspect]
     Route: 033
     Dates: start: 20071001, end: 20080201
  3. HEPARIN SODIUM INJECTION [Suspect]
     Route: 033
     Dates: start: 20071001, end: 20080201
  4. HEPARIN SODIUM INJECTION [Suspect]
     Route: 033
     Dates: start: 20071215, end: 20080601
  5. HEPARIN SODIUM INJECTION [Suspect]
     Route: 033
     Dates: start: 20071206, end: 20080101
  6. HEPARIN SODIUM INJECTION [Suspect]
     Route: 042
     Dates: start: 20080225, end: 20080101
  7. HEPARIN SODIUM INJECTION [Suspect]
     Route: 042
     Dates: start: 20080414, end: 20080414
  8. LABETALOL [Concomitant]
     Indication: PRODUCT USED FOR UNKNOWN INDICATION
     Route: 048
  9. PRILOSEC [Concomitant]
     Indication: PRODUCT USED FOR UNKNOWN INDICATION
     Route: 048
  10. HEPARIN SODIUM INJECTION [Suspect]
     Route: 058
     Dates: start: 20080201, end: 20080225
  11. HEPARIN SODIUM INJECTION [Suspect]
     Route: 033
     Dates: start: 20071001, end: 20080201
  12. LEVAQUIN [Concomitant]
     Indication: PRODUCT USED FOR UNKNOWN INDICATION
     Route: 065
  13. HEPARIN SODIUM INJECTION [Suspect]
     Indication: INTRAVENOUS CATHETER MANAGEMENT
     Route: 042
     Dates: start: 20071001, end: 20080201
  14. HEPARIN SODIUM INJECTION [Suspect]
     Route: 033
     Dates: start: 20071215, end: 20080601
  15. HEPARIN SODIUM INJECTION [Suspect]
     Route: 033
     Dates: start: 20071206, end: 20080101
  16. HEPARIN SODIUM INJECTION [Suspect]
     Route: 033
     Dates: start: 20071001, end: 20080201
  17. HEPARIN SODIUM INJECTION [Suspect]
     Route: 033
     Dates: start: 20071001, end: 20080201
  18. HEPARIN SODIUM INJECTION [Suspect]
     Route: 058
     Dates: start: 20080201, end: 20080225
  19. PREDNISONE [Concomitant]
     Indication: PRODUCT USED FOR UNKNOWN INDICATION
     Route: 065
  20. MINOXIDIL [Concomitant]
     Indication: HYPERTENSION
     Route: 065
  21. REGLAN [Concomitant]
     Indication: PRODUCT USED FOR UNKNOWN INDICATION
     Route: 065
  22. FOSRENOL [Concomitant]
     Indication: HYPERPHOSPHATAEMIA
     Route: 048
  23. SENSIPAR [Concomitant]
     Indication: PRODUCT USED FOR UNKNOWN INDICATION
     Route: 048
  24. HEPARIN SODIUM INJECTION [Suspect]
     Route: 033
     Dates: start: 20071001, end: 20080201
  25. HEPARIN SODIUM INJECTION [Suspect]
     Route: 042
     Dates: start: 20080225, end: 20080101
  26. RENA-VITE [Concomitant]
     Indication: PRODUCT USED FOR UNKNOWN INDICATION
     Route: 048
  27. HEPARIN SODIUM INJECTION [Suspect]
     Route: 042
     Dates: start: 20071001, end: 20080201
  28. HEPARIN SODIUM INJECTION [Suspect]
     Route: 065
     Dates: start: 20070501, end: 20070501
  29. DILAUDID [Concomitant]
     Indication: PRODUCT USED FOR UNKNOWN INDICATION
     Route: 065
  30. ARANESP [Concomitant]
     Indication: ANAEMIA
     Route: 058
  31. HEPARIN SODIUM INJECTION [Suspect]
     Route: 042
     Dates: start: 20071001, end: 20080201
  32. HEPARIN SODIUM INJECTION [Suspect]
     Route: 042
     Dates: start: 20071001, end: 20080201
  33. HEPARIN SODIUM INJECTION [Suspect]
     Route: 042
     Dates: start: 20071001, end: 20080201
  34. HEPARIN SODIUM INJECTION [Suspect]
     Route: 033
     Dates: start: 20071215, end: 20080601
  35. HEPARIN SODIUM INJECTION [Suspect]
     Route: 058
     Dates: start: 20080201, end: 20080225
  36. HEPARIN SODIUM INJECTION [Suspect]
     Route: 042
     Dates: start: 20080225, end: 20080101
  37. IMMUNE GLOBULIN INTRAVENOUS (HUMAN) [Suspect]
     Indication: DEMYELINATING POLYNEUROPATHY
     Route: 042
     Dates: start: 20071201, end: 20080101
  38. IMMUNE GLOBULIN INTRAVENOUS (HUMAN) [Suspect]
     Indication: OFF LABEL USE
     Route: 042
     Dates: start: 20071201, end: 20080101
  39. CONTRAST MEDIA [Concomitant]
     Indication: PRODUCT USED FOR UNKNOWN INDICATION
     Route: 065
  40. FUROSEMIDE [Concomitant]
     Indication: PRODUCT USED FOR UNKNOWN INDICATION
     Route: 048
  41. HEPARIN SODIUM INJECTION [Suspect]
     Indication: PERITONEAL DIALYSIS
     Route: 042
     Dates: start: 20071001, end: 20080201
  42. HEPARIN SODIUM INJECTION [Suspect]
     Route: 033
     Dates: start: 20071001, end: 20080201
  43. HEPARIN SODIUM INJECTION [Suspect]
     Route: 065
     Dates: start: 20070501, end: 20070501
  44. HEPARIN SODIUM INJECTION [Suspect]
     Route: 065
     Dates: start: 20070501, end: 20070501
  45. HEPARIN SODIUM INJECTION [Suspect]
     Route: 033
     Dates: start: 20071206, end: 20080101
  46. HEPARIN SODIUM INJECTION [Suspect]
     Route: 042
     Dates: start: 20080414, end: 20080414
  47. IRON [Concomitant]
     Indication: DIALYSIS
     Route: 065
  48. HEPARIN SODIUM INJECTION [Suspect]
     Route: 042
     Dates: start: 20071001, end: 20080201
  49. HEPARIN SODIUM INJECTION [Suspect]
     Route: 042
     Dates: start: 20071001, end: 20080201
  50. HEPARIN SODIUM INJECTION [Suspect]
     Route: 033
     Dates: start: 20071001, end: 20080201
  51. HEPARIN SODIUM INJECTION [Suspect]
     Route: 033
     Dates: start: 20071001, end: 20080201
  52. HEPARIN SODIUM INJECTION [Suspect]
     Route: 042
     Dates: start: 20080414, end: 20080414
  53. ALLOPURINOL [Concomitant]
     Indication: PRODUCT USED FOR UNKNOWN INDICATION
     Route: 048
  54. CELEBREX [Concomitant]
     Indication: PRODUCT USED FOR UNKNOWN INDICATION
     Route: 065
  55. AMBIEN [Concomitant]
     Indication: PRODUCT USED FOR UNKNOWN INDICATION
     Route: 048

REACTIONS (37)
  - URAEMIC ENCEPHALOPATHY [None]
  - MUSCULOSKELETAL PAIN [None]
  - WEIGHT DECREASED [None]
  - PRODUCTIVE COUGH [None]
  - SKIN DISCOLOURATION [None]
  - PERITONITIS [None]
  - MALAISE [None]
  - HYPOTONIA [None]
  - THROMBOCYTOPENIA [None]
  - PULMONARY EMBOLISM [None]
  - OSTEOMYELITIS [None]
  - PYREXIA [None]
  - HYPOAESTHESIA [None]
  - DRUG INEFFECTIVE [None]
  - ABASIA [None]
  - CARDIAC VALVE DISEASE [None]
  - CHILLS [None]
  - THIRST [None]
  - ARRHYTHMIA [None]
  - FLANK PAIN [None]
  - HAEMATOSPERMIA [None]
  - ABDOMINAL PAIN [None]
  - SYNCOPE [None]
  - HAEMATURIA [None]
  - EPISTAXIS [None]
  - HEADACHE [None]
  - RESTLESSNESS [None]
  - ASTHENIA [None]
  - BACTERAEMIA [None]
  - SPINAL COMPRESSION FRACTURE [None]
  - DEVICE RELATED INFECTION [None]
  - HYPERTENSION [None]
  - UNRESPONSIVE TO STIMULI [None]
  - ATRIAL FIBRILLATION [None]
  - DEMYELINATING POLYNEUROPATHY [None]
  - DEPRESSED LEVEL OF CONSCIOUSNESS [None]
  - VOMITING [None]
